FAERS Safety Report 24171986 (Version 1)
Quarter: 2024Q3

REPORT INFORMATION
  Report Type: Spontaneous
  Country: HU (occurrence: HU)
  Receive Date: 20240805
  Receipt Date: 20240805
  Transmission Date: 20241017
  Serious: Yes (Other)
  Sender: PHARMADAX
  Company Number: HU-PDX-000376

PATIENT
  Age: 16 Year
  Sex: Female

DRUGS (1)
  1. LEVETIRACETAM [Suspect]
     Active Substance: LEVETIRACETAM
     Indication: PCDH19 gene-related epilepsy
     Route: 065

REACTIONS (1)
  - Drug ineffective for unapproved indication [Unknown]
